FAERS Safety Report 12253568 (Version 1)
Quarter: 2016Q2

REPORT INFORMATION
  Report Type: Spontaneous
  Country: US (occurrence: None)
  Receive Date: 20160408
  Receipt Date: 20160408
  Transmission Date: 20160815
  Serious: No
  Sender: FDA-Public Use
  Company Number: None

PATIENT
  Age: 48 Year
  Sex: Female

DRUGS (1)
  1. XELJANZ [Suspect]
     Active Substance: TOFACITINIB CITRATE
     Indication: RHEUMATOID ARTHRITIS
     Dosage: 1 TAB BID PO
     Route: 048
     Dates: start: 201511

REACTIONS (3)
  - Onychoclasis [None]
  - Skin exfoliation [None]
  - Nail disorder [None]

NARRATIVE: CASE EVENT DATE: 20160207
